FAERS Safety Report 6692947-0 (Version None)
Quarter: 2010Q2

REPORT INFORMATION
  Report Type: 
  Country: None (occurrence: None)
  Receive Date: 20100420
  Receipt Date: 20100405
  Transmission Date: 20101027
  Serious: Yes (Death)
  Sender: FDA-Public Use
  Company Number: 10AE001

PATIENT
  Age: 48 Year
  Sex: Male

DRUGS (1)
  1. ACETAMINOPHEN          FILM COATED CAPLETS [Suspect]
     Indication: LOWER LIMB FRACTURE
     Dosage: 2 CAPLETS EVERY 4-6 HRS
     Dates: start: 20100310, end: 20100312

REACTIONS (2)
  - INAPPROPRIATE SCHEDULE OF DRUG ADMINISTRATION [None]
  - LOCALISED INFECTION [None]
